FAERS Safety Report 20450010 (Version 1)
Quarter: 2022Q1

REPORT INFORMATION
  Report Type: Spontaneous
  Country: US (occurrence: US)
  Receive Date: 20220209
  Receipt Date: 20220209
  Transmission Date: 20220423
  Serious: Yes (Hospitalization, Other)
  Sender: FDA-Public Use
  Company Number: US-AMGEN-USASP2022015785

PATIENT
  Age: 56 Year
  Sex: Male

DRUGS (7)
  1. FILGRASTIM [Suspect]
     Active Substance: FILGRASTIM
     Indication: Mucosal ulceration
     Dosage: UNK
     Route: 065
     Dates: start: 202101
  2. FILGRASTIM [Suspect]
     Active Substance: FILGRASTIM
     Indication: Off label use
     Dosage: UNK
     Route: 065
  3. NITROGLYCERIN [Suspect]
     Active Substance: NITROGLYCERIN
     Indication: Anal ulcer
     Dosage: UNK
     Route: 061
     Dates: start: 202101
  4. VORICONAZOLE [Suspect]
     Active Substance: VORICONAZOLE
     Indication: Antifungal prophylaxis
     Dosage: UNK
     Route: 065
     Dates: start: 2020
  5. NYSTATIN [Suspect]
     Active Substance: NYSTATIN
     Indication: Anal ulcer
     Dosage: UNK
     Route: 061
     Dates: start: 202101
  6. DIPHENHYDRAMINE [Concomitant]
     Active Substance: DIPHENHYDRAMINE
     Indication: Mouth ulceration
     Dosage: ORAL RINSE
     Route: 065
     Dates: start: 202101
  7. LIDOCAINE [Concomitant]
     Active Substance: LIDOCAINE
     Indication: Mouth ulceration
     Dosage: ORAL RINSE
     Route: 065
     Dates: start: 202101

REACTIONS (12)
  - Procalcitonin increased [Unknown]
  - Red blood cell sedimentation rate increased [Unknown]
  - Neutropenia [Recovering/Resolving]
  - Swelling face [Recovering/Resolving]
  - Dyschezia [Recovering/Resolving]
  - Lymphopenia [Recovering/Resolving]
  - Antibiotic level above therapeutic [Unknown]
  - Pain [Recovering/Resolving]
  - C-reactive protein increased [Unknown]
  - Drug ineffective for unapproved indication [Unknown]
  - Off label use [Unknown]
  - Drug ineffective [Unknown]

NARRATIVE: CASE EVENT DATE: 20210101
